FAERS Safety Report 7771208-2 (Version None)
Quarter: 2011Q3

REPORT INFORMATION
  Report Type: 
  Country: None (occurrence: None)
  Receive Date: 20110922
  Receipt Date: 20101216
  Transmission Date: 20111222
  Serious: No
  Sender: FDA-Public Use
  Company Number: US-ASTRAZENECA-2010SE59625

PATIENT
  Sex: Male

DRUGS (2)
  1. SEROQUEL [Suspect]
     Dosage: TWO TABLETS IN THE MORNING, TWO TABLETS IN THE AFTERNOON AND FOUR TABLETS AT NIGHT
     Route: 048
     Dates: start: 20070101, end: 20100101
  2. SEROQUEL [Suspect]
     Dosage: CHIPPED A PART OF 50 MG TABLET AND CHEWED IT
     Route: 048
     Dates: start: 20101001

REACTIONS (3)
  - WRONG TECHNIQUE IN DRUG USAGE PROCESS [None]
  - CHEST PAIN [None]
  - HEART RATE INCREASED [None]
